FAERS Safety Report 12404180 (Version 1)
Quarter: 2016Q2

REPORT INFORMATION
  Report Type: Spontaneous
  Country: CH (occurrence: GB)
  Receive Date: 20160525
  Receipt Date: 20160525
  Transmission Date: 20160815
  Serious: Yes (Disabling)
  Sender: FDA-Public Use
  Company Number: CH-LPDUSPRD-20160447

PATIENT
  Age: 43 Year

DRUGS (1)
  1. FERINJECT [Suspect]
     Active Substance: FERRIC CARBOXYMALTOSE
     Dosage: 1 GM
     Route: 041
     Dates: start: 20160420

REACTIONS (2)
  - Back pain [Recovered/Resolved with Sequelae]
  - Night sweats [Recovered/Resolved with Sequelae]

NARRATIVE: CASE EVENT DATE: 20160420
